FAERS Safety Report 8007731-5 (Version None)
Quarter: 2011Q4

REPORT INFORMATION
  Report Type: 
  Country: None (occurrence: None)
  Receive Date: 20111227
  Receipt Date: 20110112
  Transmission Date: 20120403
  Serious: No
  Sender: FDA-Public Use
  Company Number: US-ABBOTT-10P-163-0689855-00

PATIENT
  Sex: Male

DRUGS (2)
  1. LUPRON DEPOT [Suspect]
     Route: 050
     Dates: start: 20101124
  2. LUPRON DEPOT [Suspect]
     Indication: PROSTATE CANCER
     Route: 050

REACTIONS (2)
  - DEVICE MALFUNCTION [None]
  - DRUG DOSE OMISSION [None]
